FAERS Safety Report 5112923-9 (Version None)
Quarter: 2006Q3

REPORT INFORMATION
  Report Type: 
  Country: None (occurrence: None)
  Receive Date: 20060921
  Receipt Date: 20060921
  Transmission Date: 20061208
  Serious: Yes (Hospitalization)
  Sender: FDA-Public Use
  Company Number: None

PATIENT
  Age: 61 Year
  Sex: Female
  Weight: 92.3 kg

DRUGS (8)
  1. INTERFERON BETA-IB [Suspect]
     Indication: MULTIPLE SCLEROSIS
     Dosage: 0.25 MG SC QOD
     Route: 058
     Dates: start: 20060515
  2. INTERFERON BETA-IB [Suspect]
     Indication: MULTIPLE SCLEROSIS
     Dosage: 0.25 MG SC QOD
     Route: 058
     Dates: start: 20060517
  3. CONJUGATED ESTROGENS/MEDROXYPROGESTERONE [Concomitant]
  4. ACETATE [Concomitant]
  5. NAPROXEN [Concomitant]
  6. DILTIAZEM HCL [Concomitant]
  7. ASPIRIN [Concomitant]
  8. HYDROCHLOROTHIAZDE TAB [Concomitant]

REACTIONS (4)
  - CHEST PAIN [None]
  - DRUG HYPERSENSITIVITY [None]
  - DYSPNOEA [None]
  - PHARYNGEAL OEDEMA [None]
